FAERS Safety Report 8344273-1 (Version None)
Quarter: 2012Q2

REPORT INFORMATION
  Report Type: 
  Country: None (occurrence: None)
  Receive Date: 20120508
  Receipt Date: 20120430
  Transmission Date: 20120825
  Serious: Yes (Hospitalization, Other)
  Sender: FDA-Public Use
  Company Number: AU-B.I. PHARMACEUTICALS,INC./RIDGEFIELD-2011-AU-02429AU

PATIENT
  Sex: Female
  Weight: 77 kg

DRUGS (11)
  1. GRANISETRON [Concomitant]
     Dosage: 3 MG
     Route: 042
     Dates: start: 20111123
  2. PRAMIPEXOLE DIHYDROCHLORIDE [Suspect]
     Indication: RESTLESS LEGS SYNDROME
     Dates: end: 20111127
  3. FISH OIL [Concomitant]
  4. ACETAMINOPHEN [Concomitant]
     Route: 048
     Dates: start: 20111123
  5. LORATADINE [Concomitant]
  6. FLAXSEED OIL [Concomitant]
  7. DEXAMETHASONE [Concomitant]
     Indication: BREAST CANCER
     Dosage: 8 MG
     Route: 042
     Dates: start: 20111123
  8. GLUCOSAMINE [Concomitant]
  9. OMEGA 3, 6 AND 9 [Concomitant]
  10. CARBOPLATIN [Suspect]
     Indication: BREAST CANCER
     Dosage: 660 MG
     Route: 042
     Dates: start: 20111123
  11. DOCETAXEL [Suspect]
     Indication: BREAST CANCER
     Dosage: 140 MG
     Route: 042
     Dates: start: 20111123

REACTIONS (18)
  - RENAL FAILURE ACUTE [None]
  - CHILLS [None]
  - MALAISE [None]
  - PRESYNCOPE [None]
  - FLATULENCE [None]
  - ABDOMINAL DISTENSION [None]
  - NAUSEA [None]
  - NEUTROPENIA [None]
  - DYSPEPSIA [None]
  - ABDOMINAL DISCOMFORT [None]
  - CONSTIPATION [None]
  - HYPOPHAGIA [None]
  - COLD SWEAT [None]
  - BREAST CANCER [None]
  - DYSGEUSIA [None]
  - DEHYDRATION [None]
  - VOMITING [None]
  - LETHARGY [None]
